FAERS Safety Report 15774426 (Version 4)
Quarter: 2019Q2

REPORT INFORMATION
  Report Type: Report from Study
  Country: US (occurrence: US)
  Receive Date: 20181229
  Receipt Date: 20190628
  Transmission Date: 20190711
  Serious: Yes (Other)
  Sender: FDA-Public Use
  Company Number: PHEH2018US054744

PATIENT
  Sex: Female

DRUGS (1)
  1. GILENYA [Suspect]
     Active Substance: FINGOLIMOD HYDROCHLORIDE
     Indication: MULTIPLE SCLEROSIS
     Dosage: 0.5 MG, QD
     Route: 048
     Dates: start: 20181222

REACTIONS (6)
  - Multiple sclerosis relapse [Unknown]
  - White blood cell count decreased [Unknown]
  - Contusion [Not Recovered/Not Resolved]
  - Liver function test increased [Unknown]
  - Fatigue [Recovered/Resolved]
  - Somnolence [Unknown]
